FAERS Safety Report 6369212-4 (Version None)
Quarter: 2009Q3

REPORT INFORMATION
  Report Type: 
  Country: None (occurrence: None)
  Receive Date: 20090922
  Receipt Date: 20090917
  Transmission Date: 20100115
  Serious: Yes (Other)
  Sender: FDA-Public Use
  Company Number: SE-BAXTER-2009BH014300

PATIENT
  Age: 68 Year
  Sex: Female

DRUGS (3)
  1. ENDOXAN BAXTER [Suspect]
     Indication: MULTIPLE MYELOMA
     Route: 065
     Dates: start: 20090604, end: 20090819
  2. THALIDOMIDE [Suspect]
     Indication: MULTIPLE MYELOMA
     Route: 048
     Dates: start: 20090604, end: 20090619
  3. DELTISON [Suspect]
     Indication: MULTIPLE MYELOMA
     Route: 048
     Dates: start: 20090604, end: 20090819

REACTIONS (1)
  - PULMONARY EMBOLISM [None]
